FAERS Safety Report 9630251 (Version 4)
Quarter: 2014Q2

REPORT INFORMATION
  Report Type: Report from Study
  Country: US (occurrence: US)
  Receive Date: 20131017
  Receipt Date: 20140619
  Transmission Date: 20141212
  Serious: Yes (Congenital Anomaly)
  Sender: FDA-Public Use
  Company Number: US-GILEAD-2013-0085146

PATIENT
  Age: 0 Day
  Sex: Male
  Weight: 3.59 kg

DRUGS (4)
  1. EMTRICITABINE/TENOFOVIR DISOPROXIL FUMARATE [Suspect]
     Indication: HIV INFECTION
     Dosage: 1 DF, QD
     Route: 064
     Dates: start: 20121026, end: 20130718
  2. LOPINAVIR W/RITONAVIR [Suspect]
     Indication: HIV INFECTION
     Dosage: 4 DF, QD
     Route: 064
     Dates: start: 20121026, end: 20130718
  3. ZIDOVUDINE [Suspect]
     Indication: HIV INFECTION
     Dosage: 2 DF, QD
     Route: 064
     Dates: start: 20130131
  4. ZIDOVUDINE [Suspect]
     Dosage: 369 UNKNOWN, QD
     Route: 064

REACTIONS (1)
  - Polydactyly [Not Recovered/Not Resolved]
